FAERS Safety Report 9620121 (Version 3)
Quarter: 2014Q1

REPORT INFORMATION
  Report Type: Report from Study
  Country: BR (occurrence: BR)
  Receive Date: 20131014
  Receipt Date: 20140120
  Transmission Date: 20141002
  Serious: Yes (Hospitalization, Other)
  Sender: FDA-Public Use
  Company Number: BR-009507513-1309BRA008012

PATIENT
  Age: 65 Year
  Sex: Male
  Weight: 99 kg

DRUGS (13)
  1. DEXAMETHASONE [Suspect]
     Indication: PLASMA CELL MYELOMA
     Dosage: 20 MG, UNK
     Route: 048
     Dates: start: 20130805, end: 20130826
  2. STUDY DRUG [Suspect]
     Indication: PLASMA CELL MYELOMA
     Dosage: UNK
     Dates: start: 20130805, end: 20130826
  3. BORTEZOMIB [Suspect]
     Indication: PLASMA CELL MYELOMA
     Dosage: 1.3 MG/M2, UNK
     Route: 058
     Dates: start: 20130805, end: 20130826
  4. ENALAPRIL MALEATE [Concomitant]
     Indication: HYPERTENSION
     Dosage: UNK
  5. PREDNISONE [Concomitant]
     Dosage: UNK
     Dates: end: 20130912
  6. AAS [Concomitant]
     Indication: PROPHYLAXIS
     Dosage: UNK
  7. METFORMIN [Concomitant]
     Indication: DIABETES MELLITUS
     Dosage: UNK
  8. INSULIN HUMAN, ISOPHANE [Concomitant]
     Indication: DIABETES MELLITUS
     Dosage: UNK
  9. INSULIN HUMAN (REGULAR) [Concomitant]
     Indication: DIABETES MELLITUS
     Dosage: UNK
  10. AMLODIPINE [Concomitant]
     Indication: HYPERTENSION
     Dosage: UNK
  11. HYDROCHLOROTHIAZIDE [Concomitant]
     Indication: HYPERTENSION
     Dosage: UNK
  12. OMEPRAZOLE [Concomitant]
     Dosage: UNK
  13. ALBUTEROL (+) IPRATROPIUM BROMIDE [Concomitant]
     Dosage: UNK
     Dates: start: 20130910

REACTIONS (1)
  - Lobar pneumonia [Recovered/Resolved]
